FAERS Safety Report 6209461-9 (Version None)
Quarter: 2009Q2

REPORT INFORMATION
  Report Type: 
  Country: None (occurrence: None)
  Receive Date: 20090601
  Receipt Date: 20081124
  Transmission Date: 20091009
  Serious: No
  Sender: FDA-Public Use
  Company Number: A0757227A

PATIENT
  Age: 40 Year
  Sex: Female
  Weight: 65.9 kg

DRUGS (2)
  1. AMOXICILLIN AND CLAVULANATE POTASSIUM [Suspect]
     Indication: SINUSITIS
     Route: 048
     Dates: start: 20080901, end: 20080901
  2. NO CONCURRENT MEDICATION [Concomitant]

REACTIONS (4)
  - ABDOMINAL DISCOMFORT [None]
  - DIARRHOEA [None]
  - HYPERSENSITIVITY [None]
  - PRODUCT QUALITY ISSUE [None]
